FAERS Safety Report 24989615 (Version 2)
Quarter: 2025Q1

REPORT INFORMATION
  Report Type: Spontaneous
  Country: US (occurrence: US)
  Receive Date: 20250220
  Receipt Date: 20250307
  Transmission Date: 20250408
  Serious: Yes (Other)
  Sender: TEVA
  Company Number: US-ABBVIE-6133422

PATIENT
  Sex: Male

DRUGS (4)
  1. ACITRETIN [Suspect]
     Active Substance: ACITRETIN
     Indication: Psoriasis
     Route: 048
     Dates: start: 2012, end: 201607
  2. ACITRETIN [Suspect]
     Active Substance: ACITRETIN
     Indication: Psoriasis
     Route: 048
     Dates: start: 2011, end: 2012
  3. ADALIMUMAB [Suspect]
     Active Substance: ADALIMUMAB
     Indication: Psoriasis
     Route: 058
     Dates: start: 202011
  4. ADALIMUMAB [Suspect]
     Active Substance: ADALIMUMAB
     Indication: Psoriasis
     Route: 058
     Dates: start: 201809, end: 202008

REACTIONS (3)
  - Leukopenia [Unknown]
  - Hyperlipidaemia [Unknown]
  - Psoriasis [Unknown]
